FAERS Safety Report 9049066 (Version 1)
Quarter: 2013Q1

REPORT INFORMATION
  Report Type: Spontaneous
  Country: US (occurrence: None)
  Receive Date: 20130129
  Receipt Date: 20130129
  Transmission Date: 20140127
  Serious: No
  Sender: FDA-Public Use
  Company Number: None

PATIENT
  Sex: Male

DRUGS (2)
  1. CLOPIDOGREL [Suspect]
     Indication: MYOCARDIAL INFARCTION
     Dates: start: 20120619
  2. CLOPIDOGREL [Suspect]
     Indication: STENT PLACEMENT
     Dates: start: 20120619

REACTIONS (1)
  - Headache [None]
